FAERS Safety Report 9797197 (Version 3)
Quarter: 2014Q1

REPORT INFORMATION
  Report Type: Report from Study
  Country: BR (occurrence: BR)
  Receive Date: 20140106
  Receipt Date: 20140204
  Transmission Date: 20141002
  Serious: Yes (Life-Threatening, Other)
  Sender: FDA-Public Use
  Company Number: PHHY2013BR154095

PATIENT
  Age: 65 Year
  Sex: Female
  Weight: 60 kg

DRUGS (5)
  1. EXELON [Suspect]
     Indication: DEMENTIA ALZHEIMER^S TYPE
     Dosage: 3 MG, DAILY (USED 4 TABLETS)
     Route: 048
     Dates: start: 20131206, end: 20131210
  2. EXELON [Suspect]
     Dosage: 2 MG (2ND TABLET)
     Route: 048
  3. DEPAKENE [Concomitant]
     Indication: DEMENTIA ALZHEIMER^S TYPE
     Dosage: 500 MG (1 DF), DAILY
     Route: 048
     Dates: start: 20131206
  4. ATENOLOL [Concomitant]
     Indication: HYPERTENSION
     Dosage: 50 MG (1 DF), DAILY
     Route: 048
  5. AMLODIPINE [Concomitant]
     Indication: HYPERTENSION
     Dosage: 5 MG (1 DF), DAILY
     Route: 048

REACTIONS (13)
  - Apparent death [Recovered/Resolved]
  - Loss of consciousness [Unknown]
  - Blood pressure increased [Recovered/Resolved]
  - Convulsion [Recovered/Resolved]
  - Syncope [Recovered/Resolved]
  - Pain [Unknown]
  - Retching [Recovered/Resolved]
  - Tremor [Recovered/Resolved]
  - Somnolence [Unknown]
  - Vomiting [Unknown]
  - Agitation [Unknown]
  - Abdominal discomfort [Recovered/Resolved]
  - Nausea [Recovered/Resolved]
